FAERS Safety Report 8920393 (Version 1)
Quarter: 2012Q4

REPORT INFORMATION
  Report Type: Report from Study
  Country: US (occurrence: US)
  Receive Date: 20121121
  Receipt Date: 20121121
  Transmission Date: 20130627
  Serious: Yes (Hospitalization)
  Sender: FDA-Public Use
  Company Number: US-ROCHE-1156665

PATIENT
  Sex: Male
  Weight: 80.81 kg

DRUGS (2)
  1. CAPECITABINE [Suspect]
     Indication: OESOPHAGEAL CARCINOMA
     Route: 048
     Dates: start: 20120806, end: 201210
  2. OXYCONTIN [Concomitant]
     Indication: PAIN
     Route: 048

REACTIONS (5)
  - Asthenia [Recovering/Resolving]
  - Dehydration [Unknown]
  - Abdominal discomfort [Unknown]
  - Alopecia [Unknown]
  - Diarrhoea [Not Recovered/Not Resolved]
